FAERS Safety Report 6860166-0 (Version None)
Quarter: 2010Q3

REPORT INFORMATION
  Report Type: 
  Country: None (occurrence: None)
  Receive Date: 20100720
  Receipt Date: 20100715
  Transmission Date: 20110219
  Serious: Yes (Death)
  Sender: FDA-Public Use
  Company Number: US-GILEAD-2010-0030445

PATIENT
  Sex: Male

DRUGS (1)
  1. LETAIRIS [Suspect]
     Indication: PULMONARY ARTERIAL HYPERTENSION
     Route: 048
     Dates: start: 20100505, end: 20100711

REACTIONS (1)
  - DEATH [None]
